FAERS Safety Report 26110557 (Version 1)
Quarter: 2025Q4

REPORT INFORMATION
  Report Type: Report from Study
  Country: US (occurrence: US)
  Receive Date: 20251202
  Receipt Date: 20251202
  Transmission Date: 20260118
  Serious: Yes (Other)
  Sender: ALEXION PHARMACEUTICALS
  Company Number: US-AstraZeneca-CH-01002825A

PATIENT

DRUGS (1)
  1. DAPAGLIFLOZIN [Suspect]
     Active Substance: DAPAGLIFLOZIN
     Dosage: UNK
     Route: 065

REACTIONS (13)
  - Diabetes mellitus [Unknown]
  - Back injury [Unknown]
  - Upper limb fracture [Unknown]
  - Hand fracture [Unknown]
  - Glaucoma [Unknown]
  - Blood pressure abnormal [Unknown]
  - Sleep apnoea syndrome [Unknown]
  - Joint dislocation [Unknown]
  - Myocardial infarction [Unknown]
  - Cerebrovascular accident [Unknown]
  - Psychiatric symptom [Unknown]
  - Memory impairment [Unknown]
  - Rib fracture [Unknown]
